FAERS Safety Report 7061021-6 (Version None)
Quarter: 2010Q4

REPORT INFORMATION
  Report Type: 
  Country: None (occurrence: None)
  Receive Date: 20101026
  Receipt Date: 20101019
  Transmission Date: 20110411
  Serious: Yes (Other)
  Sender: FDA-Public Use
  Company Number: US-PFIZER INC-2010133470

PATIENT
  Sex: Female
  Weight: 155 kg

DRUGS (17)
  1. LIPITOR [Suspect]
     Indication: BLOOD CHOLESTEROL INCREASED
     Dosage: 10 MG, DAILY
     Route: 048
  2. LIPITOR [Suspect]
     Dosage: 20 MG, 1X/DAY
  3. LIPITOR [Suspect]
     Dosage: 40 MG, 1X/DAY
  4. ZYRTEC [Concomitant]
     Dosage: 10 MG, UNK
  5. NEXIUM [Concomitant]
     Dosage: 40 MG, UNK
  6. MONTELUKAST [Concomitant]
     Dosage: 10 MG, UNK
  7. SYNTHROID [Concomitant]
     Dosage: 200 UG, UNK
  8. LOTENSIN [Concomitant]
     Dosage: 20/12.5 MG, UNK
  9. ATENOLOL [Concomitant]
     Dosage: 50 MG, UNK
  10. BENTYL [Concomitant]
     Indication: IRRITABLE BOWEL SYNDROME
     Dosage: 10 MG, UNK
  11. SULFASALAZINE [Concomitant]
     Dosage: 50 MG, UNK
  12. NAPROXEN [Concomitant]
     Dosage: 500 MG, UNK
  13. PREDNISONE [Concomitant]
     Dosage: 1 MG, UNK
  14. FOLIC ACID [Concomitant]
     Dosage: 1 MG, UNK
  15. PLAQUENIL [Concomitant]
     Indication: RHEUMATOID ARTHRITIS
     Dosage: UNK
  16. FLONASE [Concomitant]
     Indication: ASTHMA
     Dosage: 50 UG, 2X/DAY
  17. ADVAIR DISKUS 100/50 [Concomitant]
     Indication: ASTHMA
     Dosage: ONE PUFF A DAY, DAILY

REACTIONS (4)
  - DRUG INEFFECTIVE [None]
  - HYPERTONIC BLADDER [None]
  - KERATOCONJUNCTIVITIS SICCA [None]
  - VITAMIN D DEFICIENCY [None]
